FAERS Safety Report 21266187 (Version 1)
Quarter: 2022Q3

REPORT INFORMATION
  Report Type: Other
  Country: None (occurrence: RU)
  Receive Date: 20220829
  Receipt Date: 20220829
  Transmission Date: 20221027
  Serious: Yes (Hospitalization)
  Sender: FDA-Public Use
  Company Number: RU-Appco Pharma LLC-2132336

PATIENT
  Age: 6 Year
  Sex: Male
  Weight: 20.7 kg

DRUGS (3)
  1. HYDROXYCHLOROQUINE SULFATE [Suspect]
     Active Substance: HYDROXYCHLOROQUINE SULFATE
     Indication: COVID-19
     Route: 048
  2. AZITHROMYCIN ANHYDROUS [Suspect]
     Active Substance: AZITHROMYCIN ANHYDROUS
     Route: 048
  3. MEROPENEM [Suspect]
     Active Substance: MEROPENEM
     Route: 042

REACTIONS (2)
  - Therapeutic product ineffective for unapproved indication [Unknown]
  - Condition aggravated [Unknown]
